FAERS Safety Report 10399299 (Version 1)
Quarter: 2014Q1

REPORT INFORMATION
  Report Type: Spontaneous
  Country: US (occurrence: None)
  Receive Date: 20130815
  Receipt Date: 20130815
  Transmission Date: 20141002
  Serious: Yes (Other)
  Sender: FDA-Public Use
  Company Number: ADR-2013-00270

PATIENT
  Age: 13 Year
  Sex: Male

DRUGS (1)
  1. LIORESAL INTRATHECAL (BACLOFEN INJECTION) 2000 MCG/ML [Suspect]
     Dosage: 770MCG/DAY

REACTIONS (5)
  - Irritability [None]
  - Drug withdrawal syndrome [None]
  - Pruritus [None]
  - Hypertension [None]
  - Drug prescribing error [None]
